FAERS Safety Report 16435305 (Version 2)
Quarter: 2019Q3

REPORT INFORMATION
  Report Type: Spontaneous
  Country: US (occurrence: US)
  Receive Date: 20190614
  Receipt Date: 20190702
  Transmission Date: 20191004
  Serious: Yes (Hospitalization)
  Sender: FDA-Public Use
  Company Number: US-MYLANLABS-2019M1054975

PATIENT
  Age: 43 Year
  Sex: Male
  Weight: 64 kg

DRUGS (19)
  1. ATORVASTATIN [Concomitant]
     Active Substance: ATORVASTATIN
  2. NITROGLYCERINE [Concomitant]
     Active Substance: NITROGLYCERIN
  3. CLOZARIL [Concomitant]
     Active Substance: CLOZAPINE
  4. MELATONIN [Concomitant]
     Active Substance: MELATONIN
  5. ALBUTEROL SULFATE INHALATION SOLUTION [Suspect]
     Active Substance: ALBUTEROL SULFATE
     Indication: WHEEZING
     Dosage: UNK
  6. LIDOCAINE. [Suspect]
     Active Substance: LIDOCAINE
     Indication: PRODUCT USED FOR UNKNOWN INDICATION
     Dosage: UNK
  7. TYLENOL [Concomitant]
     Active Substance: ACETAMINOPHEN
  8. ISENTRESS [Concomitant]
     Active Substance: RALTEGRAVIR POTASSIUM
  9. KEPPRA [Concomitant]
     Active Substance: LEVETIRACETAM
     Indication: SEIZURE
     Dosage: UNK
     Dates: start: 20150509
  10. NEURONTIN [Concomitant]
     Active Substance: GABAPENTIN
  11. TRUVADA [Concomitant]
     Active Substance: EMTRICITABINE\TENOFOVIR DISOPROXIL FUMARATE
  12. LAMICTAL [Concomitant]
     Active Substance: LAMOTRIGINE
  13. LORAZEPAM. [Concomitant]
     Active Substance: LORAZEPAM
     Indication: SEIZURE
     Dosage: UNK
     Route: 042
     Dates: start: 20150509
  14. ADENOSINE. [Suspect]
     Active Substance: ADENOSINE
     Indication: CHEST PAIN
     Dosage: 44.80 MILLIGRAM, OVER 5 MINUTES
     Route: 042
     Dates: start: 20190509, end: 20190509
  15. KLONOPIN [Concomitant]
     Active Substance: CLONAZEPAM
  16. ASPIRIN                            /00002701/ [Concomitant]
     Active Substance: ASPIRIN
  17. LEVOTHYROXINE. [Concomitant]
     Active Substance: LEVOTHYROXINE
  18. REMERON [Concomitant]
     Active Substance: MIRTAZAPINE
  19. NICOTINE. [Concomitant]
     Active Substance: NICOTINE

REACTIONS (1)
  - Seizure [Recovering/Resolving]

NARRATIVE: CASE EVENT DATE: 20190509
